FAERS Safety Report 15637843 (Version 1)
Quarter: 2018Q4

REPORT INFORMATION
  Report Type: Spontaneous
  Country: US (occurrence: US)
  Receive Date: 20181120
  Receipt Date: 20181120
  Transmission Date: 20190205
  Serious: No
  Sender: FDA-Public Use
  Company Number: US-JNJFOC-20180636267

PATIENT
  Age: 74 Year
  Sex: Female
  Weight: 104 kg

DRUGS (11)
  1. POLYETHYLENE GLYCOL [Concomitant]
     Active Substance: POLYETHYLENE GLYCOLS
  2. ELIQUIS [Concomitant]
     Active Substance: APIXABAN
  3. FAMOTIDINE. [Concomitant]
     Active Substance: FAMOTIDINE
  4. POTASSIUM CHLORIDE. [Concomitant]
     Active Substance: POTASSIUM CHLORIDE
  5. GABAPENTIN. [Concomitant]
     Active Substance: GABAPENTIN
  6. DILTIAZEM. [Concomitant]
     Active Substance: DILTIAZEM
  7. IMBRUVICA [Suspect]
     Active Substance: IBRUTINIB
     Indication: NON-HODGKIN^S LYMPHOMA
     Route: 048
     Dates: start: 20180420
  8. DOCUSATE [Concomitant]
     Active Substance: DOCUSATE
  9. BUMETANIDE. [Concomitant]
     Active Substance: BUMETANIDE
  10. LOSARTAN. [Concomitant]
     Active Substance: LOSARTAN
  11. IBUPROFEN. [Concomitant]
     Active Substance: IBUPROFEN

REACTIONS (7)
  - Back pain [Recovering/Resolving]
  - Abdominal pain upper [Recovering/Resolving]
  - Dyspepsia [Recovering/Resolving]
  - Product dose omission [Unknown]
  - Memory impairment [Unknown]
  - Pain [Recovering/Resolving]
  - Chest pain [Recovering/Resolving]

NARRATIVE: CASE EVENT DATE: 20180616
